FAERS Safety Report 5077599-8 (Version None)
Quarter: 2006Q3

REPORT INFORMATION
  Report Type: 
  Country: None (occurrence: None)
  Receive Date: 20060810
  Receipt Date: 20060413
  Transmission Date: 20061208
  Serious: No
  Sender: FDA-Public Use
  Company Number: US-GLAXOSMITHKLINE-A0602315A

PATIENT
  Sex: Female

DRUGS (1)
  1. PAROXETINE HYDROCHLORIDE [Suspect]
     Dosage: 20MG UNKNOWN
     Route: 048

REACTIONS (2)
  - MOTION SICKNESS [None]
  - NAUSEA [None]
